FAERS Safety Report 25341084 (Version 2)
Quarter: 2025Q2

REPORT INFORMATION
  Report Type: Report from Study
  Country: US (occurrence: US)
  Receive Date: 20250521
  Receipt Date: 20250619
  Transmission Date: 20250717
  Serious: Yes (Hospitalization)
  Sender: ROCHE
  Company Number: US-ROCHE-10000285167

PATIENT
  Sex: Male
  Weight: 81.65 kg

DRUGS (7)
  1. RITUXAN [Suspect]
     Active Substance: RITUXIMAB
     Indication: Rheumatoid arthritis
     Dosage: 1000 MG
     Route: 042
     Dates: start: 20250202
  2. FLONASE [Concomitant]
     Active Substance: FLUTICASONE PROPIONATE
  3. ASCORBIC ACID [Concomitant]
     Active Substance: ASCORBIC ACID
     Dosage: 1000 MG TABLET?TAKE 1 TABLET BY MOUTH DAILY.
     Route: 048
  4. MAGNESIUM MALATE [Concomitant]
     Active Substance: MAGNESIUM MALATE
     Dosage: 1250 (141.7 MG) MG TABS?TAKE 1,250 MG BY MOUTH 2 TIMES DAILY.
     Route: 048
  5. MELATONIN [Concomitant]
     Active Substance: MELATONIN
     Route: 048
  6. OMEGA-3 FATTY ACIDS [Concomitant]
     Active Substance: OMEGA-3 FATTY ACIDS
  7. VITAMIN D3 [Concomitant]
     Active Substance: CHOLECALCIFEROL

REACTIONS (7)
  - Atrial fibrillation [Recovered/Resolved]
  - Insomnia [Recovered/Resolved]
  - Onychoclasis [Not Recovered/Not Resolved]
  - Crush injury [Unknown]
  - Skin atrophy [Unknown]
  - Nasopharyngitis [Unknown]
  - Off label use [Unknown]
